FAERS Safety Report 11046065 (Version 2)
Quarter: 2015Q2

REPORT INFORMATION
  Report Type: Spontaneous
  Country: US (occurrence: US)
  Receive Date: 20150418
  Receipt Date: 20150524
  Transmission Date: 20150821
  Serious: No
  Sender: FDA-Public Use
  Company Number: US-JNJFOC-20131016652

PATIENT
  Sex: Female
  Weight: 58.97 kg

DRUGS (6)
  1. TOPROL XL [Concomitant]
     Active Substance: METOPROLOL SUCCINATE
     Indication: HEART RATE DECREASED
     Route: 065
     Dates: start: 2013
  2. AMLODIPINE [Concomitant]
     Active Substance: AMLODIPINE BESYLATE
     Indication: BLOOD PRESSURE
     Route: 065
  3. KETOCONAZOLE 2%, SHAMPOO [Suspect]
     Active Substance: KETOCONAZOLE
     Indication: DERMATITIS
     Dosage: SHAMPOO/ DAILY FOR 4 WEEKS/TOPICAL
     Route: 061
     Dates: start: 201306
  4. BLOOD PRESSURE MEDICATION NOS [Concomitant]
     Active Substance: UNSPECIFIED INGREDIENT
     Indication: BLOOD PRESSURE
     Route: 065
  5. VITAMINS (NOS) [Concomitant]
     Active Substance: VITAMINS
     Route: 065
  6. CLOBETASOL PROPIONATE. [Suspect]
     Active Substance: CLOBETASOL PROPIONATE
     Indication: DERMATITIS
     Route: 065

REACTIONS (7)
  - Inappropriate schedule of drug administration [Unknown]
  - Hair texture abnormal [Not Recovered/Not Resolved]
  - Skin lesion [Not Recovered/Not Resolved]
  - Drug ineffective [Unknown]
  - Rash pruritic [Not Recovered/Not Resolved]
  - Alopecia [Not Recovered/Not Resolved]
  - Trichorrhexis [Not Recovered/Not Resolved]

NARRATIVE: CASE EVENT DATE: 2013
